FAERS Safety Report 5949730-0 (Version None)
Quarter: 2008Q4

REPORT INFORMATION
  Report Type: 
  Country: None (occurrence: None)
  Receive Date: 20081112
  Receipt Date: 20080923
  Transmission Date: 20090506
  Serious: No
  Sender: FDA-Public Use
  Company Number: US-BAYER-200834209NA

PATIENT
  Age: 40 Year
  Sex: Male
  Weight: 91 kg

DRUGS (3)
  1. ULTRAVIST 370 [Suspect]
     Indication: COMPUTERISED TOMOGRAM ABDOMEN
     Dosage: TOTAL DAILY DOSE: 100 ML  UNIT DOSE: 500 ML
     Route: 042
     Dates: start: 20080923, end: 20080923
  2. ULTRAVIST 370 [Suspect]
     Route: 048
     Dates: start: 20080923, end: 20080923
  3. ALLEGRA [Concomitant]

REACTIONS (1)
  - URTICARIA [None]
